FAERS Safety Report 14013492 (Version 4)
Quarter: 2017Q4

REPORT INFORMATION
  Report Type: Spontaneous
  Country: BR (occurrence: BR)
  Receive Date: 20170926
  Receipt Date: 20171128
  Transmission Date: 20180321
  Serious: Yes (Death, Hospitalization)
  Sender: FDA-Public Use
  Company Number: BR-SA-2017SA178110

PATIENT
  Age: 33 Year
  Sex: Male
  Weight: 72 kg

DRUGS (9)
  1. THYMOGLOBULINE [Suspect]
     Active Substance: LAPINE T-LYMPHOCYTE IMMUNE GLOBULIN
     Indication: RENAL TRANSPLANT
     Route: 065
  2. THYMOGLOBULINE [Suspect]
     Active Substance: LAPINE T-LYMPHOCYTE IMMUNE GLOBULIN
     Indication: RENAL TRANSPLANT
     Route: 065
  3. VANCOMYCIN [Concomitant]
     Active Substance: VANCOMYCIN
     Route: 065
  4. THYMOGLOBULINE [Suspect]
     Active Substance: LAPINE T-LYMPHOCYTE IMMUNE GLOBULIN
     Indication: PANCREAS TRANSPLANT
     Route: 065
  5. CLAFORAN [Concomitant]
     Active Substance: CEFOTAXIME SODIUM
     Route: 065
  6. SOLU-MEDROL [Concomitant]
     Active Substance: METHYLPREDNISOLONE SODIUM SUCCINATE
     Route: 065
  7. HALDOL [Concomitant]
     Active Substance: HALOPERIDOL
     Route: 065
  8. ENCRISE [Concomitant]
     Route: 065
  9. THYMOGLOBULINE [Suspect]
     Active Substance: LAPINE T-LYMPHOCYTE IMMUNE GLOBULIN
     Indication: PANCREAS TRANSPLANT
     Route: 065

REACTIONS (7)
  - Blood pressure decreased [Fatal]
  - Systemic inflammatory response syndrome [Fatal]
  - Depressed level of consciousness [Fatal]
  - Transplant rejection [Fatal]
  - Distributive shock [Fatal]
  - Agitation [Fatal]
  - Polyuria [Fatal]

NARRATIVE: CASE EVENT DATE: 20170303
